FAERS Safety Report 4497246-3 (Version None)
Quarter: 2004Q4

REPORT INFORMATION
  Report Type: 
  Country: None (occurrence: None)
  Receive Date: 20041110
  Receipt Date: 20041102
  Transmission Date: 20050328
  Serious: Yes (Death)
  Sender: FDA-Public Use
  Company Number: US-JNJFOC-20040908726

PATIENT
  Age: 36 Year
  Sex: Female

DRUGS (6)
  1. TOPAMAX [Suspect]
     Indication: DRUG USE FOR UNKNOWN INDICATION
     Route: 049
  2. VENLAFAXINE [Suspect]
     Indication: DRUG USE FOR UNKNOWN INDICATION
     Route: 049
  3. VALPROIC ACID [Suspect]
     Indication: DRUG USE FOR UNKNOWN INDICATION
     Route: 049
  4. DOXYLAMINE [Suspect]
     Indication: DRUG USE FOR UNKNOWN INDICATION
     Route: 049
  5. ACETAMINOPHEN/DIPHENHYDRAMINE [Suspect]
     Indication: DRUG USE FOR UNKNOWN INDICATION
     Route: 049
  6. DIPHENHYDRAMINE [Suspect]
     Indication: DRUG USE FOR UNKNOWN INDICATION
     Route: 049

REACTIONS (4)
  - BRAIN DEATH [None]
  - CARDIO-RESPIRATORY ARREST [None]
  - COMPLETED SUICIDE [None]
  - MULTIPLE DRUG OVERDOSE INTENTIONAL [None]
